FAERS Safety Report 9917539 (Version 2)
Quarter: 2014Q1

REPORT INFORMATION
  Report Type: Spontaneous
  Country: US (occurrence: US)
  Receive Date: 20140221
  Receipt Date: 20140307
  Transmission Date: 20141002
  Serious: Yes (Other)
  Sender: FDA-Public Use
  Company Number: US-009507513-1402USA010022

PATIENT
  Sex: 0

DRUGS (4)
  1. REBETOL [Suspect]
     Indication: CHRONIC HEPATITIS C
     Dosage: DAILY
     Route: 048
  2. PEGINTERFERON LAMBDA-1A [Suspect]
     Indication: CHRONIC HEPATITIS C
     Dosage: 120 MICROGRAMS WEEKLY
  3. PEGINTERFERON LAMBDA-1A [Suspect]
     Dosage: 180 MICROGRAMS WEEKLY
  4. PEGINTERFERON LAMBDA-1A [Suspect]
     Dosage: 240 MICROGRAMS WEEKLY

REACTIONS (1)
  - Uveitis [Unknown]
